FAERS Safety Report 17604899 (Version 1)
Quarter: 2020Q1

REPORT INFORMATION
  Report Type: Spontaneous
  Country: CA (occurrence: CA)
  Receive Date: 20200331
  Receipt Date: 20200331
  Transmission Date: 20200409
  Serious: Yes (Other)
  Sender: FDA-Public Use
  Company Number: CA-SAMSUNG BIOEPIS-SB-2020-10514

PATIENT
  Age: 32 Year
  Sex: Female

DRUGS (8)
  1. INFLIXIMAB [Suspect]
     Active Substance: INFLIXIMAB
     Indication: COLITIS ULCERATIVE
     Route: 042
  2. CIPRO [Concomitant]
     Active Substance: CIPROFLOXACIN HYDROCHLORIDE
     Indication: RECTAL ABSCESS
     Route: 048
  3. CIPRO [Concomitant]
     Active Substance: CIPROFLOXACIN HYDROCHLORIDE
     Indication: FISTULA
     Dosage: UNKNOWN
     Route: 048
  4. CLOBETASOL [Concomitant]
     Active Substance: CLOBETASOL
     Indication: PRODUCT USED FOR UNKNOWN INDICATION
     Dosage: UNKNOWN
     Route: 065
  5. FLAGYL [Concomitant]
     Active Substance: METRONIDAZOLE\METRONIDAZOLE HYDROCHLORIDE
     Indication: RECTAL ABSCESS
     Dosage: UNKNOWN
     Route: 048
  6. FLAGYL [Concomitant]
     Active Substance: METRONIDAZOLE\METRONIDAZOLE HYDROCHLORIDE
     Indication: FISTULA
     Route: 048
  7. FLUOROMETHOLONE. [Concomitant]
     Active Substance: FLUOROMETHOLONE
     Indication: EYE INFLAMMATION
     Route: 047
  8. ORACORT [Concomitant]
     Indication: CROHN^S DISEASE
     Route: 065

REACTIONS (9)
  - Condition aggravated [Not Recovered/Not Resolved]
  - Nasopharyngitis [Not Recovered/Not Resolved]
  - Rectal abscess [Not Recovered/Not Resolved]
  - Ear infection fungal [Not Recovered/Not Resolved]
  - Pyrexia [Not Recovered/Not Resolved]
  - Ear infection viral [Not Recovered/Not Resolved]
  - Influenza [Not Recovered/Not Resolved]
  - Poor venous access [Not Recovered/Not Resolved]
  - Off label use [Not Recovered/Not Resolved]
